FAERS Safety Report 7007080-8 (Version None)
Quarter: 2010Q3

REPORT INFORMATION
  Report Type: 
  Country: None (occurrence: None)
  Receive Date: 20100922
  Receipt Date: 20100914
  Transmission Date: 20110219
  Serious: Yes (Hospitalization)
  Sender: FDA-Public Use
  Company Number: DE-TEVA-248772ISR

PATIENT
  Age: 71 Year
  Sex: Male
  Weight: 85 kg

DRUGS (6)
  1. ENALAPRIL [Interacting]
     Indication: HYPERTENSION
     Route: 048
     Dates: start: 20060101
  2. INSULIN ASPART [Interacting]
     Indication: DIABETES MELLITUS
     Route: 058
     Dates: start: 20080101, end: 20080901
  3. INSULIN DETEMIR [Interacting]
     Indication: DIABETES MELLITUS
     Route: 058
     Dates: start: 20080101
  4. LERCANIDIPINE [Interacting]
     Indication: HYPERTENSION
     Route: 048
     Dates: start: 20060101
  5. OPIPRAMOL [Interacting]
     Indication: RESTLESSNESS
     Route: 048
     Dates: start: 20070101, end: 20080906
  6. TARGIN(OXYCODON-HCL W/NALOXON) [Suspect]
     Indication: BACK PAIN
     Dosage: 20MG OXYCODONE+20 MG NALOXONE
     Dates: start: 20070101

REACTIONS (2)
  - DIZZINESS [None]
  - HYPOGLYCAEMIA [None]
